FAERS Safety Report 13552200 (Version 2)
Quarter: 2017Q2

REPORT INFORMATION
  Report Type: Spontaneous
  Country: US (occurrence: US)
  Receive Date: 20170516
  Receipt Date: 20170517
  Transmission Date: 20170830
  Serious: Yes (Other)
  Sender: FDA-Public Use
  Company Number: PHHY2017US066331

PATIENT
  Age: 49 Year
  Sex: Female

DRUGS (2)
  1. DOCETAXEL. [Suspect]
     Active Substance: DOCETAXEL
     Indication: BREAST CANCER
     Dosage: 134 MG, QMO
     Route: 065
  2. CYCLOPHOSPHAMIDE. [Concomitant]
     Active Substance: CYCLOPHOSPHAMIDE
     Indication: BREAST CANCER
     Dosage: 1074 MG, QMO
     Route: 065

REACTIONS (4)
  - Systemic scleroderma [Recovered/Resolved]
  - Pulmonary arterial hypertension [Recovered/Resolved]
  - Microangiopathy [Recovered/Resolved]
  - Scleroderma renal crisis [Recovered/Resolved]
